FAERS Safety Report 8315225-2 (Version None)
Quarter: 2012Q1

REPORT INFORMATION
  Report Type: 
  Country: None (occurrence: None)
  Receive Date: 20120315
  Receipt Date: 20110131
  Transmission Date: 20120608
  Serious: No
  Sender: FDA-Public Use
  Company Number: PHHY2011US09097

PATIENT
  Age: 44 Year
  Sex: Female

DRUGS (3)
  1. GILENYA [Suspect]
     Indication: MULTIPLE SCLEROSIS
     Dosage: 0.5 MG, QD, ORAL
     Route: 048
     Dates: start: 20110126, end: 20110128
  2. GABAPENTIN [Concomitant]
  3. BACLOFEN [Concomitant]

REACTIONS (7)
  - HEADACHE [None]
  - FATIGUE [None]
  - DIARRHOEA [None]
  - VIRAL INFECTION [None]
  - ABDOMINAL PAIN UPPER [None]
  - VOMITING [None]
  - ASTHENIA [None]
